FAERS Safety Report 8532552-4 (Version None)
Quarter: 2012Q3

REPORT INFORMATION
  Report Type: 
  Country: None (occurrence: None)
  Receive Date: 20120724
  Receipt Date: 20120720
  Transmission Date: 20120928
  Serious: No
  Sender: FDA-Public Use
  Company Number: US-PFIZER INC-2012176188

PATIENT
  Sex: Female

DRUGS (3)
  1. ZOLOFT [Suspect]
  2. CELEBREX [Suspect]
  3. LYRICA [Suspect]

REACTIONS (2)
  - MUSCLE TWITCHING [None]
  - VISION BLURRED [None]
